FAERS Safety Report 19995399 (Version 1)
Quarter: 2021Q4

REPORT INFORMATION
  Report Type: Spontaneous
  Country: US (occurrence: US)
  Receive Date: 20211026
  Receipt Date: 20211026
  Transmission Date: 20220304
  Serious: Yes (unspecified)
  Sender: FDA-Public Use
  Company Number: None

PATIENT
  Age: 0 Day
  Sex: Male

DRUGS (1)
  1. BAMLANIVIMAB\ETESEVIMAB [Suspect]
     Active Substance: BAMLANIVIMAB\ETESEVIMAB
     Indication: COVID-19
     Dosage: ?          OTHER FREQUENCY:ONCE;
     Route: 042
     Dates: start: 20211010, end: 20211010

REACTIONS (5)
  - Paraesthesia oral [None]
  - Infusion related reaction [None]
  - Pain in extremity [None]
  - Spinal pain [None]
  - Myalgia [None]

NARRATIVE: CASE EVENT DATE: 20211010
